FAERS Safety Report 9538474 (Version 1)
Quarter: 2013Q3

REPORT INFORMATION
  Report Type: Spontaneous
  Country: US (occurrence: None)
  Receive Date: 20130918
  Receipt Date: 20130918
  Transmission Date: 20140515
  Serious: Yes (Other)
  Sender: FDA-Public Use
  Company Number: None

PATIENT
  Sex: Female

DRUGS (7)
  1. BONIVA [Suspect]
     Indication: OSTEOPOROSIS
     Dosage: TRANSFUSED, 4XPER.YEAR, INJECTION
     Dates: start: 2006, end: 2013
  2. CALCIUM W.D [Concomitant]
  3. CRESTOR [Concomitant]
  4. ASPIRIN [Concomitant]
  5. OMEPRAZOLE [Concomitant]
  6. TRAZONE [Concomitant]
  7. ESTRADIOL 1/20 5 MG TABLET [Concomitant]

REACTIONS (1)
  - Osteonecrosis of jaw [None]
